FAERS Safety Report 11734903 (Version 2)
Quarter: 2017Q1

REPORT INFORMATION
  Report Type: Report from Study
  Country: None (occurrence: US)
  Receive Date: 20151113
  Receipt Date: 20170227
  Transmission Date: 20170428
  Serious: Yes (Other)
  Sender: FDA-Public Use
  Company Number: US-ABBVIE-15P-163-1495811-00

PATIENT
  Age: 67 Year
  Sex: Female

DRUGS (1)
  1. DUOPA [Suspect]
     Active Substance: CARBIDOPA\LEVODOPA
     Indication: PARKINSON^S DISEASE
     Route: 050
     Dates: start: 20150528

REACTIONS (2)
  - Tooth abscess [Recovered/Resolved]
  - Tooth impacted [Recovered/Resolved]

NARRATIVE: CASE EVENT DATE: 20151102
